FAERS Safety Report 6858243-3 (Version None)
Quarter: 2010Q3

REPORT INFORMATION
  Report Type: 
  Country: None (occurrence: None)
  Receive Date: 20100719
  Receipt Date: 20080203
  Transmission Date: 20110219
  Serious: No
  Sender: FDA-Public Use
  Company Number: US-PFIZER INC-2008012171

PATIENT
  Sex: Female
  Weight: 69.09 kg

DRUGS (6)
  1. CHANTIX [Suspect]
     Indication: SMOKING CESSATION THERAPY
     Dates: start: 20080111, end: 20080123
  2. RISPERDAL [Concomitant]
     Indication: MENTAL DISABILITY
  3. CALCIUM [Concomitant]
     Indication: BLOOD CALCIUM DECREASED
  4. DIURETICS [Concomitant]
     Indication: BLOOD CHOLESTEROL INCREASED
  5. LIPITOR [Concomitant]
     Indication: BLOOD CHOLESTEROL INCREASED
  6. DRUG, UNSPECIFIED [Concomitant]
     Indication: THYROID DISORDER

REACTIONS (1)
  - CONSTIPATION [None]
